APPROVED DRUG PRODUCT: EXCEDRIN (MIGRAINE RELIEF)
Active Ingredient: ACETAMINOPHEN; ASPIRIN; CAFFEINE
Strength: 250MG;250MG;65MG
Dosage Form/Route: TABLET;ORAL
Application: N020802 | Product #001
Applicant: HALEON US HOLDINGS LLC
Approved: Jan 14, 1998 | RLD: Yes | RS: Yes | Type: OTC